FAERS Safety Report 23326197 (Version 1)
Quarter: 2023Q4

REPORT INFORMATION
  Report Type: Spontaneous
  Country: US (occurrence: None)
  Receive Date: 20231220
  Receipt Date: 20231220
  Transmission Date: 20240109
  Serious: No
  Sender: FDA-Public Use
  Company Number: None

PATIENT

DRUGS (2)
  1. POSACONAZOLE [Suspect]
     Active Substance: POSACONAZOLE
  2. MEROPENEM [Suspect]
     Active Substance: MEROPENEM

REACTIONS (3)
  - Wrong technique in product usage process [None]
  - Wrong technique in product usage process [None]
  - Device infusion issue [None]
